FAERS Safety Report 15259194 (Version 2)
Quarter: 2018Q4

REPORT INFORMATION
  Report Type: Report from Study
  Country: FR (occurrence: FR)
  Receive Date: 20180809
  Receipt Date: 20181004
  Transmission Date: 20190204
  Serious: Yes (Hospitalization)
  Sender: FDA-Public Use
  Company Number: FR-ROCHE-2071171

PATIENT
  Age: 48 Year
  Sex: Female
  Weight: 67 kg

DRUGS (9)
  1. IBUPROFENE [Concomitant]
     Active Substance: IBUPROFEN
     Route: 065
     Dates: start: 20180202, end: 20180206
  2. ATEZOLIZUMAB. [Suspect]
     Active Substance: ATEZOLIZUMAB
     Indication: METASTATIC NEOPLASM
     Dosage: MOST RECENT DOSE PRIOR TO FIRST EPISODE OF ARTHRALGIA ONSET: 29/JAN/2018. ?MOST RECENT DOSE PRIOR TO
     Route: 042
     Dates: start: 20180129, end: 20180813
  3. DEDROGYL [Concomitant]
     Active Substance: CALCIFEDIOL
     Route: 065
     Dates: start: 20180618
  4. PANTOPRAZOLE [Concomitant]
     Active Substance: PANTOPRAZOLE
     Route: 065
     Dates: start: 20180724
  5. RO 6958688 (T-CELL BISPECIFIC MONOCLONAL ANTIBODY) [Suspect]
     Active Substance: INVESTIGATIONAL PRODUCT
     Indication: METASTATIC NEOPLASM
     Dosage: MOST RECENT DOSE PRIOR TO FIRST EPISODE OF ARTHRALGIA ONSET: 05/FEB/2018, 150 MG?MOST RECENT DOSE PR
     Route: 042
     Dates: start: 20180129, end: 20180813
  6. PARACETAMOL CODEINE [Concomitant]
     Active Substance: ACETAMINOPHEN\CODEINE PHOSPHATE
     Dosage: TOTAL DAILY DOSE OF 500/50 MG
     Route: 065
  7. DEXAMETHASONE. [Concomitant]
     Active Substance: DEXAMETHASONE
     Route: 065
     Dates: start: 20180305
  8. PAROXETINE. [Concomitant]
     Active Substance: PAROXETINE
     Route: 065
     Dates: start: 20180326
  9. PROBIOLOG [Concomitant]
     Route: 065
     Dates: start: 20180618

REACTIONS (3)
  - Arthralgia [Recovered/Resolved]
  - Arthritis [Recovered/Resolved]
  - Arthralgia [Recovered/Resolved]

NARRATIVE: CASE EVENT DATE: 20180207
